FAERS Safety Report 17911888 (Version 1)
Quarter: 2020Q2

REPORT INFORMATION
  Report Type: Spontaneous
  Country: US (occurrence: US)
  Receive Date: 20200618
  Receipt Date: 20200618
  Transmission Date: 20200714
  Serious: Yes (Death, Other)
  Sender: FDA-Public Use
  Company Number: US-TEVA-2020-US-1788159

PATIENT
  Sex: Male

DRUGS (8)
  1. NEOMYCIN. [Suspect]
     Active Substance: NEOMYCIN
     Route: 065
  2. BACLOFEN. [Suspect]
     Active Substance: BACLOFEN
     Route: 065
  3. OXYCONTIN [Suspect]
     Active Substance: OXYCODONE HYDROCHLORIDE
     Route: 065
  4. LYRICA [Suspect]
     Active Substance: PREGABALIN
     Route: 065
  5. DULOXETINE HCL [Suspect]
     Active Substance: DULOXETINE HYDROCHLORIDE
     Route: 065
  6. IBUPROFEN. [Suspect]
     Active Substance: IBUPROFEN
     Route: 065
  7. LIDOCAINE PATCHES [Suspect]
     Active Substance: LIDOCAINE
     Dosage: PATCH
     Route: 065
  8. OXYCODONE U4700 [Suspect]
     Active Substance: OXYCODONE
     Route: 065

REACTIONS (2)
  - Toxicity to various agents [Fatal]
  - Drug dependence [Unknown]
